FAERS Safety Report 21908932 (Version 1)
Quarter: 2023Q1

REPORT INFORMATION
  Report Type: Spontaneous
  Country: US (occurrence: None)
  Receive Date: 20230124
  Receipt Date: 20230124
  Transmission Date: 20230418
  Serious: No
  Sender: FDA-Public Use
  Company Number: None

PATIENT
  Age: 44 Year
  Sex: Male

DRUGS (1)
  1. FENTANYL CITRATE [Suspect]
     Active Substance: FENTANYL CITRATE
     Dosage: FREQUENCY : ONCE;?
     Route: 042

REACTIONS (3)
  - Delirium [None]
  - Disorientation [None]
  - Restlessness [None]

NARRATIVE: CASE EVENT DATE: 20220812
